FAERS Safety Report 19502772 (Version 1)
Quarter: 2021Q3

REPORT INFORMATION
  Report Type: Spontaneous
  Country: KE (occurrence: KE)
  Receive Date: 20210707
  Receipt Date: 20210707
  Transmission Date: 20211014
  Serious: Yes (Other)
  Sender: FDA-Public Use
  Company Number: KE-ALLERGAN-1949446US

PATIENT

DRUGS (1)
  1. COMBIGAN [Suspect]
     Active Substance: BRIMONIDINE TARTRATE\TIMOLOL MALEATE
     Indication: HYPERSENSITIVITY
     Dosage: UNK

REACTIONS (4)
  - Lethargy [Unknown]
  - Somnolence [Unknown]
  - Off label use [Unknown]
  - Contraindicated product administered [Unknown]
